FAERS Safety Report 12568857 (Version 1)
Quarter: 2016Q3

REPORT INFORMATION
  Report Type: Spontaneous
  Country: US (occurrence: US)
  Receive Date: 20160719
  Receipt Date: 20160719
  Transmission Date: 20161109
  Serious: No
  Sender: FDA-Public Use
  Company Number: US-BEH-2016070821

PATIENT
  Sex: Male
  Weight: 63.95 kg

DRUGS (18)
  1. BOOST [Concomitant]
     Active Substance: DIETARY SUPPLEMENT
  2. TRIAMCINOLONE ACETONIDE. [Concomitant]
     Active Substance: TRIAMCINOLONE ACETONIDE
  3. OMEPRAZOLE. [Concomitant]
     Active Substance: OMEPRAZOLE
  4. MULTIPLE VITAMINS [Concomitant]
     Active Substance: VITAMINS
  5. BUDESONIDE. [Concomitant]
     Active Substance: BUDESONIDE
  6. NICOTINE GUM [Concomitant]
     Active Substance: NICOTINE
  7. CHOLESTYRAMINE. [Concomitant]
     Active Substance: CHOLESTYRAMINE
  8. VITAMIN D3 [Concomitant]
     Active Substance: CHOLECALCIFEROL
  9. EPIPEN [Concomitant]
     Active Substance: EPINEPHRINE
  10. HIZENTRA [Suspect]
     Active Substance: HUMAN IMMUNOGLOBULIN G
     Dosage: UNK
     Route: 058
  11. HIZENTRA [Suspect]
     Active Substance: HUMAN IMMUNOGLOBULIN G
     Dosage: UNK
     Route: 058
  12. HIZENTRA [Suspect]
     Active Substance: HUMAN IMMUNOGLOBULIN G
     Dosage: 15 G, QW
     Route: 058
  13. FEXOFENADINE [Concomitant]
     Active Substance: FEXOFENADINE\FEXOFENADINE HYDROCHLORIDE
  14. FLUTICASONE [Concomitant]
     Active Substance: FLUTICASONE\FLUTICASONE PROPIONATE
  15. MEGESTROL ACETATE. [Concomitant]
     Active Substance: MEGESTROL ACETATE
  16. HIZENTRA [Suspect]
     Active Substance: HUMAN IMMUNOGLOBULIN G
     Indication: IMMUNODEFICIENCY COMMON VARIABLE
     Dosage: UNK
     Route: 058
  17. CYCLOBENZAPRINE [Concomitant]
     Active Substance: CYCLOBENZAPRINE
  18. MELATONIN [Concomitant]
     Active Substance: MELATONIN

REACTIONS (1)
  - Conjunctivitis [Unknown]
